FAERS Safety Report 8809091 (Version 2)
Quarter: 2012Q4

REPORT INFORMATION
  Report Type: Spontaneous
  Country: BR (occurrence: None)
  Receive Date: 20120920
  Receipt Date: 20120928
  Transmission Date: 20130627
  Serious: Yes (Other)
  Sender: FDA-Public Use
  Company Number: 2012033398

PATIENT
  Age: 18 Year
  Sex: Male

DRUGS (3)
  1. SANDOGLOBULIN [Suspect]
     Indication: IMMUNODEFICIENCY
     Route: 042
     Dates: start: 20120716, end: 20120716
  2. SANDOGLOBULIN [Suspect]
     Indication: IMMUNOMODULATORY THERAPY
     Route: 042
     Dates: start: 20120716, end: 20120716
  3. SANDOGLOBULIN [Suspect]
     Route: 042
     Dates: start: 20120716, end: 20120716

REACTIONS (2)
  - Abdominal pain [None]
  - Hypertension [None]
